FAERS Safety Report 4311086-7 (Version None)
Quarter: 2004Q1

REPORT INFORMATION
  Report Type: 
  Country: None (occurrence: None)
  Receive Date: 20040302
  Receipt Date: 20040223
  Transmission Date: 20041129
  Serious: Yes (Other)
  Sender: FDA-Public Use
  Company Number: NSADSS2002015351

PATIENT
  Age: 34 Year
  Sex: Female
  Weight: 72.5755 kg

DRUGS (2)
  1. REMICADE [Suspect]
     Indication: CROHN'S DISEASE
     Dosage: , 1 IN 1 AS NECESSARY, INTRAVENOUS DRIP; 5 MG/KG, INTRAVENOUS DRIP
     Route: 041
     Dates: start: 20010601
  2. REMICADE [Suspect]
     Indication: CROHN'S DISEASE
     Dosage: , 1 IN 1 AS NECESSARY, INTRAVENOUS DRIP; 5 MG/KG, INTRAVENOUS DRIP
     Route: 041
     Dates: start: 20010823

REACTIONS (4)
  - DEFAECATION URGENCY [None]
  - HEADACHE [None]
  - HYPERSENSITIVITY [None]
  - RESPIRATORY ARREST [None]
